FAERS Safety Report 17574599 (Version 2)
Quarter: 2020Q3

REPORT INFORMATION
  Report Type: Report from Study
  Country: PT (occurrence: PT)
  Receive Date: 20200324
  Receipt Date: 20200326
  Transmission Date: 20201104
  Serious: Yes (Disabling, Other)
  Sender: FDA-Public Use
  Company Number: PT-TEVA-2020-PT-1212205

PATIENT
  Sex: Female
  Weight: 73 kg

DRUGS (3)
  1. MABTHERA [Suspect]
     Active Substance: RITUXIMAB
     Indication: DIFFUSE LARGE B-CELL LYMPHOMA
     Route: 065
     Dates: start: 20191023
  2. BENDAMUSTINE HYDROCHLORIDE. [Suspect]
     Active Substance: BENDAMUSTINE HYDROCHLORIDE
     Indication: DIFFUSE LARGE B-CELL LYMPHOMA
     Route: 042
     Dates: start: 20191023
  3. POLATUZUMAB VEDOTIN. [Suspect]
     Active Substance: POLATUZUMAB VEDOTIN
     Indication: DIFFUSE LARGE B-CELL LYMPHOMA
     Route: 065
     Dates: start: 20191023

REACTIONS (6)
  - Diarrhoea [Unknown]
  - Pyrexia [Unknown]
  - Nausea [Recovered/Resolved]
  - Product use in unapproved indication [Unknown]
  - Fatigue [Recovered/Resolved]
  - Neuropathy peripheral [Not Recovered/Not Resolved]

NARRATIVE: CASE EVENT DATE: 201911
